FAERS Safety Report 6995083-9 (Version None)
Quarter: 2010Q3

REPORT INFORMATION
  Report Type: 
  Country: None (occurrence: None)
  Receive Date: 20100917
  Receipt Date: 20090605
  Transmission Date: 20110219
  Serious: Yes (Other)
  Sender: FDA-Public Use
  Company Number: HQWYE754507MAY04

PATIENT
  Sex: Female
  Weight: 70.37 kg

DRUGS (2)
  1. PREMPRO [Suspect]
  2. CYCRIN [Suspect]

REACTIONS (1)
  - BREAST CANCER [None]
